FAERS Safety Report 18726186 (Version 1)
Quarter: 2021Q1

REPORT INFORMATION
  Report Type: Spontaneous
  Country: US (occurrence: US)
  Receive Date: 20210111
  Receipt Date: 20210111
  Transmission Date: 20210419
  Serious: No
  Sender: FDA-Public Use
  Company Number: US-TAKEDA-2021TUS000851

PATIENT
  Sex: Male
  Weight: 100 kg

DRUGS (2)
  1. ENTYVIO [Suspect]
     Active Substance: VEDOLIZUMAB
     Indication: COLITIS ULCERATIVE
     Dosage: UNK, Q6WEEKS
     Route: 065
     Dates: start: 202008
  2. LIALDA [Suspect]
     Active Substance: MESALAMINE
     Indication: COLITIS ULCERATIVE
     Dosage: 1.2 GRAM, QD
     Route: 065

REACTIONS (2)
  - Therapeutic response shortened [Unknown]
  - No adverse event [Unknown]
